FAERS Safety Report 8219952-7 (Version None)
Quarter: 2012Q1

REPORT INFORMATION
  Report Type: 
  Country: None (occurrence: None)
  Receive Date: 20120319
  Receipt Date: 20120309
  Transmission Date: 20120608
  Serious: Yes (Other)
  Sender: FDA-Public Use
  Company Number: DE-ROCHE-1037983

PATIENT
  Sex: Male
  Weight: 61 kg

DRUGS (11)
  1. CLOPIDOGREL [Concomitant]
  2. ASPIRIN [Concomitant]
  3. DOXAZOSIN MESYLATE [Concomitant]
  4. MIRCERA [Suspect]
     Indication: NEPHROGENIC ANAEMIA
     Route: 042
     Dates: start: 20111222, end: 20111223
  5. RAMIPRIL [Concomitant]
  6. FUROSEMIDE [Concomitant]
     Route: 048
  7. SIMVASTATIN [Concomitant]
  8. ALFACALCIDOL [Concomitant]
     Route: 048
  9. BISOPROLOL FUMARATE [Concomitant]
     Dosage: 3/4
  10. FLURAZEPAM [Concomitant]
  11. OMEPRAZOLE [Concomitant]

REACTIONS (1)
  - THROMBOCYTOPENIA [None]
